FAERS Safety Report 10010196 (Version 2)
Quarter: 2014Q1

REPORT INFORMATION
  Report Type: Spontaneous
  Country: US (occurrence: US)
  Receive Date: 20140312
  Receipt Date: 20140312
  Transmission Date: 20141002
  Serious: Yes (Other)
  Sender: FDA-Public Use
  Company Number: US-INCYTE CORPORATION-2013IN001055

PATIENT
  Age: 66 Year
  Sex: Female

DRUGS (2)
  1. JAKAFI [Suspect]
     Indication: THROMBOCYTOPENIA
     Dosage: 25 MG, BID
     Route: 048
     Dates: start: 20130207, end: 20130603
  2. ARANESP [Concomitant]
     Dosage: UNK
     Dates: start: 20130422

REACTIONS (2)
  - Anaemia [Unknown]
  - Platelet count increased [Unknown]
